FAERS Safety Report 23618491 (Version 3)
Quarter: 2024Q1

REPORT INFORMATION
  Report Type: Spontaneous
  Country: US (occurrence: US)
  Receive Date: 20240311
  Receipt Date: 20240326
  Transmission Date: 20240409
  Serious: No
  Sender: FDA-Public Use
  Company Number: US-IPSEN Group, Research and Development-2024-03803

PATIENT
  Age: 75 Year
  Sex: Female
  Weight: 61 kg

DRUGS (10)
  1. TAZVERIK [Suspect]
     Active Substance: TAZEMETOSTAT HYDROBROMIDE
     Indication: Follicular lymphoma
     Dosage: 800 MG TWICE PER DAY
     Route: 048
     Dates: start: 20240227, end: 20240321
  2. AMLODIPINE AND ATORVASTATIN [Concomitant]
     Active Substance: AMLODIPINE BESYLATE\ATORVASTATIN CALCIUM
  3. ATORVASTATIN [Concomitant]
     Active Substance: ATORVASTATIN
  4. FENOFIBRATE [Concomitant]
     Active Substance: FENOFIBRATE
  5. JARDIANCE [Concomitant]
     Active Substance: EMPAGLIFLOZIN
  6. OMEGA-3 FATTY ACIDS [Concomitant]
     Active Substance: OMEGA-3 FATTY ACIDS
  7. MONTELUKAST [Concomitant]
     Active Substance: MONTELUKAST SODIUM
  8. SODIUM CHLORIDE [Concomitant]
     Active Substance: SODIUM CHLORIDE
  9. VITAMIN B12 [Concomitant]
     Active Substance: CYANOCOBALAMIN
  10. CHOLECALCIFEROL [Concomitant]
     Active Substance: CHOLECALCIFEROL

REACTIONS (4)
  - Dizziness [Not Recovered/Not Resolved]
  - Night sweats [Recovering/Resolving]
  - Tinnitus [Not Recovered/Not Resolved]
  - Vertigo [Recovering/Resolving]

NARRATIVE: CASE EVENT DATE: 20240306
